FAERS Safety Report 5745360-4 (Version None)
Quarter: 2008Q2

REPORT INFORMATION
  Report Type: 
  Country: None (occurrence: None)
  Receive Date: 20080521
  Receipt Date: 20080509
  Transmission Date: 20081010
  Serious: Yes (Life-Threatening)
  Sender: FDA-Public Use
  Company Number: CZ-ROCHE-563475

PATIENT
  Sex: Male
  Weight: 68 kg

DRUGS (7)
  1. XELODA [Suspect]
     Indication: COLON CANCER
     Dosage: CYCLE 3. TREATMENT INTERRUPTED. FORM AND STRENGTH PER PROTOCOL.
     Route: 048
     Dates: start: 20080208, end: 20080403
  2. BEVACIZUMAB [Suspect]
     Indication: COLON CANCER
     Dosage: CYCLE 3. TREATMENT INTERRUPTED. FORM AND STRENGTH PER PROTOCOL.
     Route: 042
     Dates: start: 20080208, end: 20080321
  3. BETALOC [Concomitant]
     Route: 048
     Dates: start: 20040101
  4. 1 CONCOMITANT DRUG [Concomitant]
     Dosage: DRUG REPORTED; COPTEN
     Route: 048
     Dates: start: 20040101
  5. VEROSPIRON [Concomitant]
     Route: 048
     Dates: start: 20000101
  6. 1 CONCOMITANT DRUG [Concomitant]
     Indication: BENIGN PROSTATIC HYPERPLASIA
     Dosage: DRUG: TAFLOSIN
     Route: 048
     Dates: start: 20060101
  7. ANOPYRIN [Concomitant]
     Route: 048
     Dates: start: 20000101

REACTIONS (1)
  - APPENDICITIS [None]
